FAERS Safety Report 12933785 (Version 6)
Quarter: 2019Q2

REPORT INFORMATION
  Report Type: Spontaneous
  Country: US (occurrence: US)
  Receive Date: 20161111
  Receipt Date: 20190509
  Transmission Date: 20190711
  Serious: No
  Sender: FDA-Public Use
  Company Number: US-PFIZER INC-2016519392

PATIENT
  Age: 59 Year
  Sex: Female
  Weight: 74.39 kg

DRUGS (6)
  1. LETROZOLE. [Suspect]
     Active Substance: LETROZOLE
     Dosage: 2.5 MG, 1X/DAY
     Route: 048
  2. BYSTOLIC [Concomitant]
     Active Substance: NEBIVOLOL HYDROCHLORIDE
     Indication: BLOOD PRESSURE MEASUREMENT
     Dosage: 10 MG, 1X/DAY
     Route: 048
  3. ZOMETA [Concomitant]
     Active Substance: ZOLEDRONIC ACID
     Indication: METASTASES TO BONE
     Dosage: UNK, EVERY 3 MONTHS (INFUSION)
  4. IBRANCE [Suspect]
     Active Substance: PALBOCICLIB
     Indication: BREAST CANCER METASTATIC
     Dosage: 125 MG, CYCLIC (DAILY FOR 21 DAYS)
     Route: 048
     Dates: start: 20161020
  5. CALCIUM [Concomitant]
     Active Substance: CALCIUM
     Indication: BONE DISORDER
     Dosage: UNK
  6. IBRANCE [Suspect]
     Active Substance: PALBOCICLIB
     Dosage: 100 MG, CYCLIC (ONCE A DAY FOR 21 DAYS OFF FOR 7 DAYS)
     Dates: start: 2016

REACTIONS (9)
  - White blood cell count abnormal [Unknown]
  - Neutrophil count abnormal [Recovering/Resolving]
  - Fatigue [Recovering/Resolving]
  - Job dissatisfaction [Unknown]
  - Blood glucose fluctuation [Unknown]
  - Arthralgia [Unknown]
  - Body height decreased [Unknown]
  - Weight increased [Not Recovered/Not Resolved]
  - Red blood cell count abnormal [Unknown]

NARRATIVE: CASE EVENT DATE: 2016
